FAERS Safety Report 9280442 (Version 1)
Quarter: 2013Q2

REPORT INFORMATION
  Report Type: Spontaneous
  Country: US (occurrence: None)
  Receive Date: 20130507
  Receipt Date: 20130507
  Transmission Date: 20140414
  Serious: No
  Sender: FDA-Public Use
  Company Number: None

PATIENT
  Sex: Female

DRUGS (1)
  1. CODEINE [Suspect]
     Indication: MOTION SICKNESS

REACTIONS (2)
  - Vomiting [None]
  - Retching [None]
